FAERS Safety Report 24746143 (Version 3)
Quarter: 2025Q1

REPORT INFORMATION
  Report Type: Spontaneous
  Country: DE (occurrence: DE)
  Receive Date: 20241218
  Receipt Date: 20250129
  Transmission Date: 20250408
  Serious: No
  Sender: UCB
  Company Number: DE-UCBSA-2024064792

PATIENT
  Sex: Male

DRUGS (1)
  1. NEUPRO [Suspect]
     Active Substance: ROTIGOTINE
     Indication: Parkinson^s disease
     Dates: start: 202409

REACTIONS (3)
  - Erythema [Recovered/Resolved]
  - Drug ineffective [Unknown]
  - Product adhesion issue [Unknown]
